FAERS Safety Report 8810674 (Version 3)
Quarter: 2013Q1

REPORT INFORMATION
  Report Type: Report from Study
  Country: US (occurrence: US)
  Receive Date: 20120927
  Receipt Date: 20130109
  Transmission Date: 20140127
  Serious: Yes (Death, Hospitalization, Other)
  Sender: FDA-Public Use
  Company Number: US-BAYER-2012-100027

PATIENT
  Age: 70 Year
  Sex: Male
  Weight: 103.86 kg

DRUGS (16)
  1. BETASERON [Suspect]
     Indication: MULTIPLE SCLEROSIS
     Dosage: 8 MIU, QOD
     Route: 058
     Dates: start: 20060623, end: 20120723
  2. GABAPENTIN [Concomitant]
     Indication: PAIN
     Dosage: 100 MG, UNK
  3. AMIODARONE HCL [Concomitant]
     Dosage: 200 MG, UNK
  4. ASPIRIN [Concomitant]
     Dosage: 81 MG, UNK
     Route: 048
  5. CARDIAZEM [Concomitant]
     Dosage: 120 MG, UNK
  6. OMEGA 3 FATTY ACIDS [Concomitant]
     Dosage: 1 G, UNK
  7. SIMVASTATIN [Concomitant]
     Dosage: 20 MG, UNK
  8. DIGOXIN [Concomitant]
     Dosage: 0.25 MG 1/2 TAB DAILY
  9. METOPROLOL TARTRATE [Concomitant]
     Dosage: 50 MG, UNK
  10. KLOR-CON [Suspect]
     Dosage: 20 MEQ CR-TABS 2 BID
  11. AMITRIPTYLINE HCL [Concomitant]
     Dosage: 50 MG, UNK
  12. CALCARB WITH VITAMIN D [Concomitant]
     Dosage: 600 MG, UNK
  13. DOXAZOSIN MESYLATE [Concomitant]
     Dosage: 8 UNK, UNK
  14. ENALAPRIL MALEATE [Concomitant]
     Dosage: 20 MG, UNK
  15. FUROSEMIDE [Concomitant]
     Dosage: 40 MG, UNK
  16. MULTIVITAMINS [Concomitant]
     Dosage: 1 UNK, UNK

REACTIONS (21)
  - Atrial fibrillation [Not Recovered/Not Resolved]
  - Accident [Unknown]
  - Head injury [Unknown]
  - Haematoma [None]
  - Haemorrhage intracranial [Unknown]
  - Subdural haematoma [None]
  - Cardiac arrest [Fatal]
  - Sick sinus syndrome [None]
  - Anticoagulation drug level below therapeutic [None]
  - Ventricular arrhythmia [None]
  - Embolic stroke [None]
  - Hemiparesis [None]
  - Aphasia [None]
  - Fall [None]
  - Asthenia [None]
  - Benign prostatic hyperplasia [None]
  - Oedema peripheral [None]
  - Increased tendency to bruise [None]
  - Arthralgia [None]
  - Asthenia [None]
  - Paraesthesia [None]
